FAERS Safety Report 23896546 (Version 1)
Quarter: 2024Q2

REPORT INFORMATION
  Report Type: Spontaneous
  Country: RU (occurrence: RU)
  Receive Date: 20240524
  Receipt Date: 20240524
  Transmission Date: 20240716
  Serious: Yes (Life-Threatening)
  Sender: FDA-Public Use
  Company Number: RU-AMERICAN REGENT INC-2024001979

PATIENT
  Age: 37 Year
  Sex: Female
  Weight: 60 kg

DRUGS (1)
  1. FERINJECT [Suspect]
     Active Substance: FERRIC CARBOXYMALTOSE
     Indication: Anaemia
     Dosage: 50 MG DILUTED IN 250 ML OF NACL, ONE TIME (50 MG, 1 IN 1 TOTAL)
     Dates: start: 20240513, end: 20240513

REACTIONS (3)
  - Asthenia [Recovering/Resolving]
  - Product preparation issue [Unknown]
  - Angioedema [Recovering/Resolving]

NARRATIVE: CASE EVENT DATE: 20240513
